FAERS Safety Report 5498192-9 (Version None)
Quarter: 2007Q4

REPORT INFORMATION
  Report Type: 
  Country: None (occurrence: None)
  Receive Date: 20071025
  Receipt Date: 20070424
  Transmission Date: 20080405
  Serious: No
  Sender: FDA-Public Use
  Company Number: A0646783A

PATIENT

DRUGS (2)
  1. ADVAIR DISKUS 100/50 [Suspect]
     Route: 055
  2. HEPATITIS B VACCINE [Suspect]
     Indication: PROPHYLAXIS
     Route: 065

REACTIONS (1)
  - NONSPECIFIC REACTION [None]
